FAERS Safety Report 10756229 (Version 4)
Quarter: 2015Q2

REPORT INFORMATION
  Report Type: Spontaneous
  Country: US (occurrence: US)
  Receive Date: 20150202
  Receipt Date: 20150403
  Transmission Date: 20150821
  Serious: Yes (Hospitalization, Other)
  Sender: FDA-Public Use
  Company Number: US-UNITED THERAPEUTICS-UNT-2014-012488

PATIENT
  Age: 77 Year
  Sex: Female
  Weight: 96.15 kg

DRUGS (6)
  1. TYVASO [Suspect]
     Active Substance: TREPROSTINIL
     Dosage: 18-54 ?G, QID
     Dates: start: 20141212
  2. OPSUMIT [Concomitant]
     Active Substance: MACITENTAN
     Indication: PRODUCT USED FOR UNKNOWN INDICATION
  3. TYVASO [Suspect]
     Active Substance: TREPROSTINIL
     Dosage: 18-54 ?G, QID
     Dates: start: 20141212
  4. TYVASO [Suspect]
     Active Substance: TREPROSTINIL
     Dosage: 6-18 ?G, TID-QID
     Dates: start: 20141212
  5. TYVASO [Suspect]
     Active Substance: TREPROSTINIL
     Indication: PULMONARY ARTERIAL HYPERTENSION
     Dosage: 6-18 ?G, TID-QID
     Dates: start: 20141212
  6. COUMADIN [Concomitant]
     Active Substance: WARFARIN SODIUM
     Indication: PRODUCT USED FOR UNKNOWN INDICATION

REACTIONS (15)
  - Haematochezia [Unknown]
  - Headache [Recovered/Resolved]
  - Urticaria [Unknown]
  - Anaemia [Unknown]
  - Gastric haemorrhage [Unknown]
  - Cough [Recovered/Resolved]
  - Gastritis [Not Recovered/Not Resolved]
  - Haemorrhoids [Not Recovered/Not Resolved]
  - Blister [Unknown]
  - Asthenia [Unknown]
  - Fatigue [Unknown]
  - Fatigue [Unknown]
  - Chest discomfort [Recovered/Resolved]
  - Malaise [Recovered/Resolved]
  - Oedema peripheral [Unknown]

NARRATIVE: CASE EVENT DATE: 201412
